FAERS Safety Report 24023185 (Version 8)
Quarter: 2024Q3

REPORT INFORMATION
  Report Type: Report from Study
  Country: TR (occurrence: TR)
  Receive Date: 20240627
  Receipt Date: 20240710
  Transmission Date: 20241016
  Serious: No
  Sender: ROCHE
  Company Number: TR-ROCHE-3094534

PATIENT
  Age: 36 Year
  Sex: Male
  Weight: 68.0 kg

DRUGS (21)
  1. ALECTINIB [Suspect]
     Active Substance: ALECTINIB
     Indication: Lung cancer metastatic
     Route: 048
     Dates: start: 20210611
  2. GERALGINE-K [Concomitant]
     Indication: Bone pain
     Dates: start: 20210310
  3. DELTACORTRIL [Concomitant]
     Active Substance: PREDNISOLONE
     Route: 048
     Dates: start: 20210907, end: 20231029
  4. SULFASALAZINE [Concomitant]
     Active Substance: SULFASALAZINE
     Route: 048
     Dates: start: 20210907, end: 20231029
  5. D-COLEFOR [Concomitant]
     Indication: Vitamin D deficiency
     Route: 048
     Dates: start: 20210907
  6. KEPPRA [Concomitant]
     Active Substance: LEVETIRACETAM
     Route: 048
     Dates: start: 20220825
  7. BENADAY [Concomitant]
     Indication: Fatigue
     Route: 048
     Dates: start: 20220825
  8. LANSOPRAZOLE [Concomitant]
     Active Substance: LANSOPRAZOLE
     Route: 048
     Dates: start: 20220825
  9. LORLATINIB [Concomitant]
     Active Substance: LORLATINIB
     Dates: start: 20230106, end: 20231028
  10. BEVACIZUMAB [Concomitant]
     Active Substance: BEVACIZUMAB
     Dates: start: 20211103, end: 20220614
  11. LEVOTRON [Concomitant]
     Indication: Hypothyroidism
     Route: 048
     Dates: start: 20210628, end: 20210805
  12. ALECTINIB [Concomitant]
     Active Substance: ALECTINIB
     Indication: Lung cancer metastatic
     Route: 065
     Dates: start: 20210324
  13. BEVACIZUMAB [Concomitant]
     Active Substance: BEVACIZUMAB
     Indication: Lung cancer metastatic
     Route: 042
     Dates: start: 20220517, end: 20220614
  14. BEVACIZUMAB [Concomitant]
     Active Substance: BEVACIZUMAB
     Indication: Radiation necrosis
     Route: 042
     Dates: start: 20221103, end: 20221215
  15. BEVACIZUMAB [Concomitant]
     Active Substance: BEVACIZUMAB
     Route: 042
     Dates: start: 20230522, end: 20230605
  16. BEVACIZUMAB [Concomitant]
     Active Substance: BEVACIZUMAB
     Route: 065
     Dates: start: 20220517, end: 20221103
  17. BEVACIZUMAB [Concomitant]
     Active Substance: BEVACIZUMAB
     Route: 065
     Dates: start: 20230106, end: 20231028
  18. CIPRALEX [Concomitant]
     Active Substance: ESCITALOPRAM OXALATE
     Dates: start: 20221003
  19. BACTROBAN [Concomitant]
     Active Substance: MUPIROCIN CALCIUM
  20. TANFLEX [Concomitant]
  21. EPINEPHRINE\LIDOCAINE HYDROCHLORIDE [Concomitant]
     Active Substance: EPINEPHRINE\LIDOCAINE HYDROCHLORIDE

REACTIONS (1)
  - Tinnitus [Unknown]

NARRATIVE: CASE EVENT DATE: 20210808
